FAERS Safety Report 5822266-3 (Version None)
Quarter: 2008Q4

REPORT INFORMATION
  Report Type: 
  Country: None (occurrence: None)
  Receive Date: 20080714
  Receipt Date: 20080428
  Transmission Date: 20090506
  Serious: Yes (Other)
  Sender: FDA-Public Use
  Company Number: 561761

PATIENT
  Age: 77 Year
  Sex: Male
  Weight: 58.1 kg

DRUGS (4)
  1. BONIVA [Suspect]
     Indication: OSTEOPOROSIS PROPHYLAXIS
     Dosage: 150 MG 1 PER MONTH ORAL
     Route: 048
     Dates: start: 20071212, end: 20080313
  2. FLUTAMIDE [Suspect]
     Indication: PROSTATE CANCER
     Dosage: 250 MG 3 PER DAY
     Dates: start: 20070401
  3. CARVEDILOL [Concomitant]
  4. VITAMIN D [Concomitant]

REACTIONS (1)
  - RADIUS FRACTURE [None]
